FAERS Safety Report 16067188 (Version 1)
Quarter: 2019Q2

REPORT INFORMATION
  Report Type: Spontaneous
  Country: US (occurrence: US)
  Receive Date: 20190313
  Receipt Date: 20190313
  Transmission Date: 20190711
  Serious: No
  Sender: FDA-Public Use
  Company Number: None

PATIENT
  Age: 77 Year
  Sex: Female
  Weight: 76.05 kg

DRUGS (1)
  1. LATANOPROST OPTHALMIC SOLUTION 0.005% 125 MCG/2.5 ML [Suspect]
     Active Substance: LATANOPROST
     Indication: GLAUCOMA
     Route: 047

REACTIONS (4)
  - Peripheral swelling [None]
  - Pain in extremity [None]
  - Limb discomfort [None]
  - Fatigue [None]
